FAERS Safety Report 8017425-8 (Version None)
Quarter: 2012Q1

REPORT INFORMATION
  Report Type: 
  Country: None (occurrence: None)
  Receive Date: 20120102
  Receipt Date: 20111017
  Transmission Date: 20120608
  Serious: Yes (Other)
  Sender: FDA-Public Use
  Company Number: PHHY2011US108512

PATIENT
  Age: 64 Year
  Sex: Male

DRUGS (10)
  1. THALIDOMIDE [Concomitant]
  2. METHYLPREDNISOLONE [Concomitant]
  3. MELPHALAN HYDROCHLORIDE [Concomitant]
     Dates: start: 20080101
  4. DEXAMETHASONE W/DOXORUBICIN/VINCRISTINE [Concomitant]
     Route: 042
  5. ZOLEDRONIC ACID [Suspect]
     Indication: MULTIPLE MYELOMA
     Dosage: 4 MG, QMO-(MONTHLY DOSE OF 4 MG)
     Route: 042
  6. PAMIDRONATE DISODIUM [Suspect]
     Dosage: 90 MG, QMO
     Route: 042
     Dates: end: 20020101
  7. BORTEZOMIB [Concomitant]
     Route: 042
  8. MEDROL [Concomitant]
  9. CLARITHROMYCIN [Concomitant]
     Route: 048
  10. PREDNISONE [Concomitant]
     Dosage: 50 MG, UNK
     Route: 048

REACTIONS (8)
  - NEOPLASM PROGRESSION [None]
  - PAIN IN EXTREMITY [None]
  - PAIN [None]
  - NEOPLASM MALIGNANT [None]
  - RIB FRACTURE [None]
  - OEDEMA PERIPHERAL [None]
  - DISCOMFORT [None]
  - FOOT FRACTURE [None]
